FAERS Safety Report 25614487 (Version 1)
Quarter: 2025Q3

REPORT INFORMATION
  Report Type: Other
  Country: IN (occurrence: IN)
  Receive Date: 20250729
  Receipt Date: 20250729
  Transmission Date: 20251020
  Serious: Yes (Hospitalization, Other)
  Sender: ANI
  Company Number: IN-ANIPHARMA-023778

PATIENT
  Age: 58 Year
  Sex: Female

DRUGS (4)
  1. CYCLOPHOSPHAMIDE [Suspect]
     Active Substance: CYCLOPHOSPHAMIDE
     Indication: Breast cancer metastatic
  2. DOXORUBICIN [Concomitant]
     Active Substance: DOXORUBICIN
     Indication: Breast cancer metastatic
  3. PACLITAXEL [Concomitant]
     Active Substance: PACLITAXEL
     Indication: Breast cancer metastatic
  4. CARBOPLATIN [Concomitant]
     Active Substance: CARBOPLATIN
     Indication: Breast cancer metastatic

REACTIONS (6)
  - Burkholderia pseudomallei infection [Recovering/Resolving]
  - Pancytopenia [Recovering/Resolving]
  - Febrile neutropenia [Recovering/Resolving]
  - Pneumonia [Recovering/Resolving]
  - Arthritis bacterial [Recovering/Resolving]
  - Burkholderia pseudomallei infection [Recovering/Resolving]
